FAERS Safety Report 5630551-3 (Version None)
Quarter: 2008Q1

REPORT INFORMATION
  Report Type: 
  Country: None (occurrence: None)
  Receive Date: 20080219
  Receipt Date: 20080213
  Transmission Date: 20080703
  Serious: Yes (Hospitalization, Other)
  Sender: FDA-Public Use
  Company Number: BR-BRISTOL-MYERS SQUIBB COMPANY-14077739

PATIENT
  Age: 38 Year
  Sex: Male
  Weight: 73 kg

DRUGS (3)
  1. REYATAZ [Suspect]
     Route: 048
  2. LAMIVUDINE [Concomitant]
  3. ZIDOVUDINE [Concomitant]

REACTIONS (3)
  - LIPODYSTROPHY ACQUIRED [None]
  - OSTEONECROSIS [None]
  - PAIN IN EXTREMITY [None]
